FAERS Safety Report 21936446 (Version 1)
Quarter: 2023Q1

REPORT INFORMATION
  Report Type: Report from Study
  Country: US (occurrence: US)
  Receive Date: 20230201
  Receipt Date: 20230201
  Transmission Date: 20230418
  Serious: No
  Sender: FDA-Public Use
  Company Number: US-INCYTE CORPORATION-2020IN012710

PATIENT

DRUGS (5)
  1. PEMIGATINIB [Suspect]
     Active Substance: PEMIGATINIB
     Indication: Cholangiocarcinoma
     Dosage: 13.5 MILLIGRAM, QD FOR 14 DAYS, 1 WEEK OFF
     Route: 048
     Dates: start: 202009
  2. PEMIGATINIB [Suspect]
     Active Substance: PEMIGATINIB
     Dosage: 13.5 MILLIGRAM, 14 DAYS ON, 7 DAYS OFF
     Route: 048
     Dates: start: 20201218
  3. PHOSPHORUS [Concomitant]
     Active Substance: PHOSPHORUS
     Indication: Product used for unknown indication
     Route: 065
  4. MAGNESIUM [Concomitant]
     Active Substance: MAGNESIUM
     Indication: Product used for unknown indication
     Route: 065
  5. ZINC [Concomitant]
     Active Substance: ZINC
     Indication: Product used for unknown indication
     Route: 065

REACTIONS (9)
  - Ageusia [Unknown]
  - Anosmia [Unknown]
  - Memory impairment [Unknown]
  - Asthenia [Unknown]
  - Decreased appetite [Unknown]
  - Alopecia [Unknown]
  - Dry eye [Unknown]
  - Dry skin [Unknown]
  - Dysgeusia [Unknown]
